FAERS Safety Report 12279570 (Version 3)
Quarter: 2016Q4

REPORT INFORMATION
  Report Type: Spontaneous
  Country: US (occurrence: US)
  Receive Date: 20160418
  Receipt Date: 20161019
  Transmission Date: 20170207
  Serious: No
  Sender: FDA-Public Use
  Company Number: US-OTSUKA-2016_006543

PATIENT
  Age: 35 Year
  Sex: Female
  Weight: 69.84 kg

DRUGS (1)
  1. REXULTI [Suspect]
     Active Substance: BREXPIPRAZOLE
     Indication: SCHIZOPHRENIA
     Dosage: 4 MG (1 TAB), QD
     Route: 065
     Dates: start: 20160211, end: 20160323

REACTIONS (5)
  - Decreased appetite [Unknown]
  - Abdominal distension [Unknown]
  - Blood pressure increased [Unknown]
  - Weight increased [Unknown]
  - Off label use [Unknown]

NARRATIVE: CASE EVENT DATE: 20160211
